FAERS Safety Report 24549604 (Version 1)
Quarter: 2024Q4

REPORT INFORMATION
  Report Type: Spontaneous
  Country: US (occurrence: None)
  Receive Date: 20241024
  Receipt Date: 20241024
  Transmission Date: 20250115
  Serious: Yes (Death)
  Sender: Public
  Company Number: None

PATIENT
  Age: 69 Year
  Sex: Female

DRUGS (17)
  1. PIRFENIDONE [Suspect]
     Active Substance: PIRFENIDONE
     Indication: Idiopathic pulmonary fibrosis
     Dosage: FREQUENCY : 3 TIMES A DAY;?
     Route: 048
     Dates: start: 20210910, end: 20230803
  2. CLONAZEPAM [Concomitant]
     Active Substance: CLONAZEPAM
  3. BUSPIRONE [Concomitant]
     Active Substance: BUSPIRONE HYDROCHLORIDE
  4. ESTRADIOL [Concomitant]
     Active Substance: ESTRADIOL
  5. PRAZOSIN [Concomitant]
     Active Substance: PRAZOSIN\PRAZOSIN HYDROCHLORIDE
  6. ROSUVASTATIN [Concomitant]
     Active Substance: ROSUVASTATIN
  7. CLOPIDOGREL [Concomitant]
     Active Substance: CLOPIDOGREL BISULFATE
  8. GABAPENTIN [Concomitant]
     Active Substance: GABAPENTIN
  9. FUROSEMIDE [Concomitant]
     Active Substance: FUROSEMIDE
  10. DULOXETINE [Concomitant]
     Active Substance: DULOXETINE
  11. BUPROPION [Concomitant]
     Active Substance: BUPROPION
  12. acetainophen [Concomitant]
  13. ASPIRIN [Concomitant]
     Active Substance: ASPIRIN
  14. ALBUTEROL [Concomitant]
     Active Substance: ALBUTEROL
  15. TORADOL [Concomitant]
     Active Substance: KETOROLAC TROMETHAMINE
  16. VITAMIN D3 [Concomitant]
     Active Substance: CHOLECALCIFEROL
  17. VITAMIN B12 [Concomitant]
     Active Substance: CYANOCOBALAMIN

REACTIONS (4)
  - Emphysema [None]
  - Pneumothorax [None]
  - Disease progression [None]
  - Hospice care [None]

NARRATIVE: CASE EVENT DATE: 20230726
